FAERS Safety Report 12582989 (Version 2)
Quarter: 2016Q3

REPORT INFORMATION
  Report Type: Spontaneous
  Country: US (occurrence: US)
  Receive Date: 20160722
  Receipt Date: 20160729
  Transmission Date: 20161109
  Serious: Yes (Other)
  Sender: FDA-Public Use
  Company Number: US-PFIZER INC-2016346369

PATIENT
  Sex: Female
  Weight: 54.43 kg

DRUGS (2)
  1. PREPARATION H CREAM MAX STRENGTH [Suspect]
     Active Substance: GLYCERIN\PETROLATUM\PHENYLEPHRINE HYDROCHLORIDE\PRAMOXINE HYDROCHLORIDE
     Indication: HAEMORRHOIDS
     Dosage: UNK
     Dates: start: 20160712
  2. PREPARATION H MEDICATED WIPES [Suspect]
     Active Substance: WITCH HAZEL
     Indication: HAEMORRHOIDS
     Dosage: UNK
     Dates: start: 20160712

REACTIONS (5)
  - Emotional disorder [Unknown]
  - Drug ineffective [Unknown]
  - Haemorrhoids [Unknown]
  - Condition aggravated [Unknown]
  - Pain [Recovered/Resolved]

NARRATIVE: CASE EVENT DATE: 201607
